FAERS Safety Report 4495487-2 (Version None)
Quarter: 2004Q4

REPORT INFORMATION
  Report Type: 
  Country: None (occurrence: None)
  Receive Date: 20041108
  Receipt Date: 20040922
  Transmission Date: 20050328
  Serious: Yes (Other)
  Sender: FDA-Public Use
  Company Number: IT-JNJFOC-20040909307

PATIENT
  Age: 11 Year
  Sex: Female
  Weight: 120 kg

DRUGS (3)
  1. TOPIRMATE [Suspect]
     Dosage: 400MGDIE
     Route: 049
  2. TOPIRMATE [Suspect]
     Indication: OBESITY
     Dosage: 200MGDIE
     Route: 049
  3. FLUVOXAMINE [Suspect]
     Indication: OBESITY
     Route: 065

REACTIONS (9)
  - ABNORMAL BEHAVIOUR [None]
  - AGGRESSION [None]
  - CHOLELITHIASIS [None]
  - DROOLING [None]
  - HALLUCINATION [None]
  - NEPHROLITHIASIS [None]
  - PYREXIA [None]
  - SOMNOLENCE [None]
  - VISUAL DISTURBANCE [None]
